FAERS Safety Report 7480943-5 (Version None)
Quarter: 2011Q2

REPORT INFORMATION
  Report Type: 
  Country: None (occurrence: None)
  Receive Date: 20110506
  Receipt Date: 20110422
  Transmission Date: 20111010
  Serious: Yes (Hospitalization, Other)
  Sender: FDA-Public Use
  Company Number: 1000020139

PATIENT
  Age: 20 Year
  Sex: Male
  Weight: 78 kg

DRUGS (1)
  1. ESCITALOPRAM [Suspect]
     Dosage: ONCE, ORAL
     Route: 048
     Dates: start: 20110409, end: 20110409

REACTIONS (4)
  - HYPERTENSION [None]
  - INTENTIONAL OVERDOSE [None]
  - PALLOR [None]
  - SUICIDE ATTEMPT [None]
